FAERS Safety Report 9039718 (Version 1)
Quarter: 2013Q1

REPORT INFORMATION
  Report Type: Report from Study
  Country: US (occurrence: US)
  Receive Date: 20130130
  Receipt Date: 20130130
  Transmission Date: 20140127
  Serious: No
  Sender: FDA-Public Use
  Company Number: US-ABBOTT-12P-163-0927760-00

PATIENT
  Sex: Female

DRUGS (1)
  1. HUMIRA 40 MG/0.8 ML PEN [Suspect]
     Indication: RHEUMATOID ARTHRITIS
     Dosage: EVERY 14 DAYS FOR 30 DAYS
     Dates: start: 201201

REACTIONS (2)
  - Injection site erythema [Unknown]
  - Hypersensitivity [Not Recovered/Not Resolved]
